FAERS Safety Report 12654903 (Version 1)
Quarter: 2016Q3

REPORT INFORMATION
  Report Type: Spontaneous
  Country: US (occurrence: None)
  Receive Date: 20160815
  Receipt Date: 20160815
  Transmission Date: 20161109
  Serious: Yes (Life-Threatening, Hospitalization)
  Sender: FDA-Public Use
  Company Number: None

PATIENT
  Age: 70 Year
  Sex: Male
  Weight: 97.5 kg

DRUGS (1)
  1. CETUXIMAB [Suspect]
     Active Substance: CETUXIMAB
     Indication: NEOPLASM MALIGNANT
     Route: 042
     Dates: start: 20151002, end: 20151002

REACTIONS (8)
  - Dizziness [None]
  - Hypoxia [None]
  - Acidosis [None]
  - Hypercapnia [None]
  - Nausea [None]
  - Pulmonary oedema [None]
  - Respiratory failure [None]
  - Tachypnoea [None]

NARRATIVE: CASE EVENT DATE: 20151002
